FAERS Safety Report 9280190 (Version 1)
Quarter: 2013Q2

REPORT INFORMATION
  Report Type: Spontaneous
  Country: US (occurrence: US)
  Receive Date: 20130509
  Receipt Date: 20130509
  Transmission Date: 20140414
  Serious: No
  Sender: FDA-Public Use
  Company Number: US-TEVA-400247USA

PATIENT
  Sex: Female

DRUGS (1)
  1. TREANDA [Suspect]

REACTIONS (4)
  - Dysgeusia [Unknown]
  - Oropharyngeal pain [Unknown]
  - Eye irritation [Unknown]
  - Accidental exposure to product [Unknown]
